FAERS Safety Report 7027932-2 (Version None)
Quarter: 2010Q4

REPORT INFORMATION
  Report Type: 
  Country: None (occurrence: None)
  Receive Date: 20101005
  Receipt Date: 20100903
  Transmission Date: 20110411
  Serious: No
  Sender: FDA-Public Use
  Company Number: US-BAYER-201024221NA

PATIENT
  Age: 45 Year
  Sex: Female

DRUGS (2)
  1. MIRENA [Suspect]
     Indication: CONTRACEPTION
     Dosage: FREQUENCY: CONTINUOUS.  MIRENA STOP DATE SEEMS TO BE INCONSISTENT ACCORDING TO START DATE OF NEXT TX
     Route: 015
     Dates: start: 20080626, end: 20100505
  2. MIRENA [Suspect]
     Dosage: FREQUENCY: CONTINUOUS. DATE OF START THERAPY WITH MIRNEA SEEMS INCONSISTENT ACCORDING TO PREVIOUS TX
     Route: 015
     Dates: start: 20100428, end: 20100903

REACTIONS (4)
  - DEVICE DISLOCATION [None]
  - DEVICE EXPULSION [None]
  - PAIN [None]
  - VAGINAL HAEMORRHAGE [None]
